FAERS Safety Report 9413829 (Version 2)
Quarter: 2013Q3

REPORT INFORMATION
  Report Type: Spontaneous
  Country: JP (occurrence: None)
  Receive Date: 20130719
  Receipt Date: 20130815
  Transmission Date: 20140515
  Serious: Yes (Other)
  Sender: FDA-Public Use
  Company Number: TCI2013A04010

PATIENT
  Age: 52 Year
  Sex: Female

DRUGS (2)
  1. LANSAP 400 [Suspect]
     Indication: HELICOBACTER INFECTION
     Dosage: 1 CARD (0.5 CARD, 2 IN 1 D)
     Route: 048
     Dates: start: 20130626, end: 20130629
  2. BIOFERMIN R (STREPTOCOCCUS FAECALIS) [Concomitant]

REACTIONS (4)
  - Rhabdomyolysis [None]
  - Chromaturia [None]
  - Myalgia [None]
  - Drug eruption [None]
